FAERS Safety Report 7040114-3 (Version None)
Quarter: 2010Q4

REPORT INFORMATION
  Report Type: 
  Country: None (occurrence: None)
  Receive Date: 20101012
  Receipt Date: 20101001
  Transmission Date: 20110411
  Serious: Yes (Hospitalization)
  Sender: FDA-Public Use
  Company Number: PHHY2010CA50820

PATIENT
  Sex: Male

DRUGS (1)
  1. SANDOSTATIN LAR [Suspect]
     Indication: NEUROENDOCRINE TUMOUR
     Dosage: 30 MG, ONCE A MONTH
     Route: 030
     Dates: start: 20100727

REACTIONS (6)
  - ABDOMINAL DISTENSION [None]
  - FLUSHING [None]
  - LIVER OPERATION [None]
  - NAUSEA [None]
  - SMALL INTESTINAL RESECTION [None]
  - TUMOUR EXCISION [None]
